FAERS Safety Report 7331871-7 (Version None)
Quarter: 2011Q1

REPORT INFORMATION
  Report Type: 
  Country: None (occurrence: None)
  Receive Date: 20110304
  Receipt Date: 20100216
  Transmission Date: 20110831
  Serious: Yes (Other)
  Sender: FDA-Public Use
  Company Number: US-PFIZER INC-2010020800

PATIENT
  Sex: Female

DRUGS (1)
  1. DILANTIN [Suspect]

REACTIONS (6)
  - CONFUSIONAL STATE [None]
  - NAUSEA [None]
  - BLOOD GLUCOSE INCREASED [None]
  - DIZZINESS [None]
  - VISUAL IMPAIRMENT [None]
  - SALIVA ALTERED [None]
